FAERS Safety Report 26100993 (Version 1)
Quarter: 2025Q4

REPORT INFORMATION
  Report Type: Spontaneous
  Country: EU (occurrence: EU)
  Receive Date: 20251128
  Receipt Date: 20251128
  Transmission Date: 20260118
  Serious: Yes (Hospitalization)
  Sender: TEVA
  Company Number: None

PATIENT
  Age: 68 Year
  Sex: Female
  Weight: 82 kg

DRUGS (9)
  1. DOCETAXEL [Suspect]
     Active Substance: DOCETAXEL
     Indication: HER2 positive breast cancer
     Dosage: DATE OF LAST DOSE PRIOR TO SAE: 19/JUL/2012
     Route: 042
     Dates: start: 20120628
  2. FALICARD [Concomitant]
     Indication: Product used for unknown indication
     Route: 065
     Dates: start: 1992
  3. CARBOPLATIN [Suspect]
     Active Substance: CARBOPLATIN
     Indication: HER2 positive breast cancer
     Dosage: DATE OF LAST DOSE PRIOR TO SAE: 28/JUN/2012
     Route: 042
     Dates: start: 20120628
  4. PLACEBO [Suspect]
     Active Substance: PLACEBO
     Indication: HER2 positive breast cancer
     Route: 042
  5. PLACEBO [Suspect]
     Active Substance: PLACEBO
     Indication: HER2 positive breast cancer
     Dosage: MAINTENANCE DOSE
     Route: 042
  6. PLACEBO [Suspect]
     Active Substance: PLACEBO
     Indication: HER2 positive breast cancer
     Dosage: LOADING DOSE ON DAY 1 CYCLE?DATE OF LAST DOSE PRIOR TO SAE: 28-JUN-2012
     Route: 042
     Dates: start: 20120628, end: 20120628
  7. LEVOTHYROXINE SODIUM [Concomitant]
     Active Substance: LEVOTHYROXINE SODIUM
     Indication: Product used for unknown indication
     Route: 065
     Dates: start: 1984
  8. TRASTUZUMAB [Suspect]
     Active Substance: TRASTUZUMAB
     Indication: HER2 positive breast cancer
     Dosage: MAINTENANCE DOSE
     Route: 042
  9. TRASTUZUMAB [Suspect]
     Active Substance: TRASTUZUMAB
     Indication: HER2 positive breast cancer
     Dosage: LOADING DOSE ON DAY 1 CYCLE?DATE OF LAST DOSE PRIOR TO SAE: 28-JUN-2012
     Route: 042
     Dates: start: 20120628, end: 20120628

REACTIONS (2)
  - Vomiting [Recovered/Resolved]
  - Vomiting [Recovered/Resolved]

NARRATIVE: CASE EVENT DATE: 20120702
